FAERS Safety Report 6176715-4 (Version None)
Quarter: 2009Q2

REPORT INFORMATION
  Report Type: 
  Country: None (occurrence: None)
  Receive Date: 20090501
  Receipt Date: 20090422
  Transmission Date: 20091009
  Serious: Yes (Hospitalization)
  Sender: FDA-Public Use
  Company Number: DE-ABBOTT-09P-062-0563809-00

PATIENT
  Sex: Male

DRUGS (7)
  1. HUMIRA [Suspect]
     Indication: CROHN'S DISEASE
     Route: 048
  2. CORTISONE [Concomitant]
     Indication: INTERVERTEBRAL DISC PROTRUSION
     Dosage: 5MG REDUCE TO 3MG, WILL BE REDUCED MORE
  3. CORTISONE [Concomitant]
     Route: 030
     Dates: start: 20080801
  4. OLMESARTAN [Concomitant]
     Indication: HYPERTONIA
  5. OMEPRAZOL [Concomitant]
     Indication: DRUG USE FOR UNKNOWN INDICATION
  6. SYMBICORT [Concomitant]
     Indication: CHRONIC OBSTRUCTIVE PULMONARY DISEASE
     Dosage: 160/4.5 MILLIGRAMS, 2 IN 1 DAY
     Route: 055
  7. MESALAZIN [Concomitant]
     Indication: CROHN'S DISEASE
     Dosage: 3X 2 SACHETS/DAY, REDUCED TO 3X 1 SACHET /DAY

REACTIONS (4)
  - BACTERIA STOOL IDENTIFIED [None]
  - CHRONIC OBSTRUCTIVE PULMONARY DISEASE [None]
  - FREQUENT BOWEL MOVEMENTS [None]
  - URINARY TRACT INFECTION [None]
